FAERS Safety Report 8818954 (Version 4)
Quarter: 2013Q4

REPORT INFORMATION
  Report Type: Report from Study
  Country: IL (occurrence: IL)
  Receive Date: 20121001
  Receipt Date: 20131110
  Transmission Date: 20140711
  Serious: Yes (Other)
  Sender: FDA-Public Use
  Company Number: PHHY2012IL058329

PATIENT
  Age: 52 Year
  Sex: Female

DRUGS (1)
  1. GILENYA [Suspect]
     Indication: MULTIPLE SCLEROSIS
     Dosage: 0.5 MG, QD
     Route: 048
     Dates: start: 20120701

REACTIONS (13)
  - Calculus urinary [Unknown]
  - Renal pain [Unknown]
  - Urinary tract infection [Unknown]
  - Abdominal pain upper [Recovering/Resolving]
  - Nausea [Not Recovered/Not Resolved]
  - Eye swelling [Recovering/Resolving]
  - Sleep disorder [Unknown]
  - Fatigue [Recovering/Resolving]
  - Helicobacter infection [Unknown]
  - Gastric infection [Unknown]
  - Abdominal infection [Unknown]
  - Dyspnoea [Unknown]
  - Headache [Not Recovered/Not Resolved]
